FAERS Safety Report 7622626-4 (Version None)
Quarter: 2011Q3

REPORT INFORMATION
  Report Type: 
  Country: None (occurrence: None)
  Receive Date: 20110719
  Receipt Date: 20110719
  Transmission Date: 20111222
  Serious: Yes (Life-Threatening, Hospitalization)
  Sender: FDA-Public Use
  Company Number: None

PATIENT
  Age: 34 Year
  Sex: Female
  Weight: 57.1532 kg

DRUGS (1)
  1. BEYAZ [Suspect]
     Indication: PREGNANCY
     Dosage: SAMPLES DAILY PO
     Route: 048
     Dates: start: 20110401, end: 20110618

REACTIONS (2)
  - TRANSIENT ISCHAEMIC ATTACK [None]
  - BASILAR ARTERY THROMBOSIS [None]
